FAERS Safety Report 5275507-8 (Version None)
Quarter: 2007Q1

REPORT INFORMATION
  Report Type: 
  Country: None (occurrence: None)
  Receive Date: 20070326
  Receipt Date: 20070315
  Transmission Date: 20070707
  Serious: Yes (Other)
  Sender: FDA-Public Use
  Company Number: US-JNJFOC-20070304216

PATIENT
  Sex: Male
  Weight: 88.45 kg

DRUGS (2)
  1. TOPAMAX [Suspect]
     Indication: TREMOR
     Route: 048
  2. HYDROCHLOROTHIAZIDE [Concomitant]
     Indication: HYPERTENSION

REACTIONS (4)
  - CORNEAL DISORDER [None]
  - EYE DISORDER [None]
  - ROAD TRAFFIC ACCIDENT [None]
  - VISION BLURRED [None]
